FAERS Safety Report 14152100 (Version 1)
Quarter: 2017Q4

REPORT INFORMATION
  Report Type: Spontaneous
  Country: US (occurrence: None)
  Receive Date: 20171102
  Receipt Date: 20171102
  Transmission Date: 20180321
  Serious: Yes (Hospitalization)
  Sender: FDA-Public Use
  Company Number: None

PATIENT
  Age: 55 Year
  Sex: Female
  Weight: 84.5 kg

DRUGS (8)
  1. ALTENOLOL [Concomitant]
  2. TRAMADOL. [Concomitant]
     Active Substance: TRAMADOL
  3. METFORMIN HYDROCHLORIDE. [Suspect]
     Active Substance: METFORMIN HYDROCHLORIDE
     Dates: end: 20171022
  4. IBIUPROFEN [Concomitant]
  5. ELIQUIS [Concomitant]
     Active Substance: APIXABAN
  6. DEXAMETHSONE 8 MG [Concomitant]
     Active Substance: DEXAMETHASONE
  7. ONDANSETRON [Concomitant]
     Active Substance: ONDANSETRON
  8. OXYCODONE [Concomitant]
     Active Substance: OXYCODONE

REACTIONS (3)
  - Vaginal haemorrhage [None]
  - Abscess [None]
  - Abdominal pain [None]

NARRATIVE: CASE EVENT DATE: 20171024
